FAERS Safety Report 8221846-8 (Version None)
Quarter: 2012Q1

REPORT INFORMATION
  Report Type: 
  Country: None (occurrence: None)
  Receive Date: 20120320
  Receipt Date: 20120307
  Transmission Date: 20120608
  Serious: Yes (Hospitalization)
  Sender: FDA-Public Use
  Company Number: US-SHIRE-ALL1-2012-01355

PATIENT
  Age: 17 Year
  Sex: Male

DRUGS (3)
  1. PREDNISONE [Concomitant]
     Indication: COLITIS ULCERATIVE
     Dosage: 20 MG, 1X/DAY:QD
     Route: 065
  2. PENTASA [Suspect]
     Indication: COLITIS ULCERATIVE
     Dosage: UNK, UNKNOWN
     Route: 048
  3. PREDNISONE [Concomitant]
     Dosage: 40 MG, 1X/DAY:QD
     Route: 065

REACTIONS (1)
  - ALVEOLITIS [None]
